FAERS Safety Report 12355153 (Version 2)
Quarter: 2016Q2

REPORT INFORMATION
  Report Type: Spontaneous
  Country: JP (occurrence: JP)
  Receive Date: 20160511
  Receipt Date: 20160607
  Transmission Date: 20160815
  Serious: Yes (Hospitalization, Other)
  Sender: FDA-Public Use
  Company Number: JP-MDT-ADR-2016-00845

PATIENT
  Age: 65 Year
  Sex: Male

DRUGS (2)
  1. GABALON [Suspect]
     Active Substance: BACLOFEN
     Route: 037
     Dates: start: 20080922
  2. GABALON [Suspect]
     Active Substance: BACLOFEN
     Route: 037
     Dates: start: 20150121

REACTIONS (4)
  - Spinal cord infection [Unknown]
  - Osteomyelitis [Unknown]
  - Inflammation [Unknown]
  - Decubitus ulcer [Recovered/Resolved]

NARRATIVE: CASE EVENT DATE: 2004
